FAERS Safety Report 9916289 (Version 1)
Quarter: 2014Q1

REPORT INFORMATION
  Report Type: Spontaneous
  Country: US (occurrence: None)
  Receive Date: 20140219
  Receipt Date: 20140219
  Transmission Date: 20141002
  Serious: Yes (Hospitalization, Other)
  Sender: FDA-Public Use
  Company Number: 2013US002921

PATIENT
  Age: 65 Year
  Sex: Female
  Weight: 48 kg

DRUGS (7)
  1. PONATINIB (AP24534) TABLET [Suspect]
     Indication: ACUTE LYMPHOCYTIC LEUKAEMIA
     Route: 048
     Dates: start: 20131202
  2. FLUCONAZOLE (FLUNCONAZOLE) [Concomitant]
  3. CIPROFLOXACIN (CIPROFLOXACIN HYDROCHLORIDE) [Concomitant]
  4. ACYCLOVIR (ACYCLOVIR) [Concomitant]
  5. K-DUR (POTASSIUM CHLORIDE) [Concomitant]
  6. HUMALOG (INSULIN LISPRO) [Concomitant]
  7. ATIVAN (LORAZEPAM) [Concomitant]

REACTIONS (24)
  - Deafness unilateral [None]
  - Leukaemic infiltration brain [None]
  - Epistaxis [None]
  - Platelet count decreased [None]
  - Febrile neutropenia [None]
  - Sinus congestion [None]
  - Confusional state [None]
  - Erythema multiforme [None]
  - Mental status changes [None]
  - Agitation [None]
  - Weight decreased [None]
  - Drug hypersensitivity [None]
  - Hypoacusis [None]
  - Hypoacusis [None]
  - Cerumen impaction [None]
  - Ventricular extrasystoles [None]
  - Dysphagia [None]
  - Rash vesicular [None]
  - Headache [None]
  - Nausea [None]
  - Decreased appetite [None]
  - Pyrexia [None]
  - Vomiting [None]
  - Febrile neutropenia [None]
